FAERS Safety Report 4676759-5 (Version None)
Quarter: 2005Q2

REPORT INFORMATION
  Report Type: 
  Country: None (occurrence: None)
  Receive Date: 20050527
  Receipt Date: 20050513
  Transmission Date: 20051028
  Serious: Yes (Other)
  Sender: FDA-Public Use
  Company Number: 2005067621

PATIENT
  Age: 55 Year
  Sex: Female
  Weight: 56.6996 kg

DRUGS (8)
  1. BEXTRA [Suspect]
     Indication: ARTHRITIS
     Dosage: 10 MG (10 MG, 1 IN 1 D), ORAL
     Route: 048
     Dates: start: 20000101
  2. GEMFIBROZIL [Concomitant]
  3. TRAZODONE HCL [Concomitant]
  4. CLONAZEPAM [Concomitant]
  5. ESCITALOPRAM OXALATE [Concomitant]
  6. VITAMINS (VITAMINS) [Concomitant]
  7. ASPIRIN [Concomitant]
  8. LANSOPRAZOLE [Concomitant]

REACTIONS (11)
  - BLOOD CHOLESTEROL INCREASED [None]
  - DRY SKIN [None]
  - HYPERTENSION [None]
  - INADEQUATE ANALGESIA [None]
  - NAIL DISORDER [None]
  - OSTEOPOROSIS [None]
  - PAIN IN EXTREMITY [None]
  - RASH SCALY [None]
  - SKIN ATROPHY [None]
  - SKIN HAEMORRHAGE [None]
  - STENT PLACEMENT [None]
